FAERS Safety Report 7676340-X (Version None)
Quarter: 2011Q3

REPORT INFORMATION
  Report Type: 
  Country: None (occurrence: None)
  Receive Date: 20110811
  Receipt Date: 20110808
  Transmission Date: 20111222
  Serious: Yes (Hospitalization, Other)
  Sender: FDA-Public Use
  Company Number: US-PFIZER INC-2009255671

PATIENT
  Sex: Female
  Weight: 80 kg

DRUGS (12)
  1. DILANTIN [Suspect]
     Dosage: 100 MG, 3X/DAY
     Route: 048
     Dates: start: 20080318, end: 20080101
  2. DILANTIN [Suspect]
     Dosage: 300 MG, EVERY BED TIME
     Route: 048
     Dates: start: 20080310, end: 20080101
  3. DILANTIN [Suspect]
     Indication: CLONIC CONVULSION
  4. DILANTIN-125 [Suspect]
     Dosage: 300 MG, EVERY BED TIME
     Route: 048
     Dates: start: 20080325, end: 20080409
  5. CIPROFLOXACIN [Concomitant]
     Dosage: 400 MG, UNK
     Route: 042
  6. COUMADIN [Concomitant]
     Dosage: UNK
  7. PACLITAXEL [Concomitant]
     Dosage: UNK
  8. DILANTIN [Suspect]
     Indication: CONVULSION
     Dosage: 300 MG, 1X/DAY
     Route: 042
     Dates: start: 20080301
  9. DILANTIN [Suspect]
     Dosage: 100 MG, 3X/DAY
     Route: 048
     Dates: start: 20080318
  10. DILANTIN KAPSEAL [Suspect]
     Dosage: 100 MG, 3X/DAY
     Route: 048
     Dates: start: 20080325
  11. FLUCONAZOLE [Concomitant]
     Dosage: 100 MG, DAILY
     Route: 048
  12. ROCEPHIN [Concomitant]
     Dosage: 1 G, UNK
     Route: 042

REACTIONS (1)
  - STEVENS-JOHNSON SYNDROME [None]
